FAERS Safety Report 4665055-8 (Version None)
Quarter: 2005Q2

REPORT INFORMATION
  Report Type: 
  Country: None (occurrence: None)
  Receive Date: 20050517
  Receipt Date: 20050506
  Transmission Date: 20051028
  Serious: Yes (Hospitalization)
  Sender: FDA-Public Use
  Company Number: 2005AD000037

PATIENT
  Age: 93 Year
  Sex: Male

DRUGS (3)
  1. CEPHALEXIN                    (CEPHALEXIN CAPSULES) [Suspect]
     Indication: URINARY TRACT INFECTION
     Dosage: 250 MG
     Route: 048
     Dates: end: 20050419
  2. TRIMETHOPRIM [Suspect]
     Indication: URINARY TRACT INFECTION
     Dosage: 200 MG; PO
     Route: 048
     Dates: start: 20050418, end: 20050419
  3. ASPIRIN [Concomitant]

REACTIONS (3)
  - PHARYNGEAL OEDEMA [None]
  - PRURITUS [None]
  - RASH ERYTHEMATOUS [None]
